FAERS Safety Report 8866192 (Version 2)
Quarter: 2012Q4

REPORT INFORMATION
  Report Type: 
  Country: DE (occurrence: DE)
  Receive Date: 20121025
  Receipt Date: 20121231
  Transmission Date: 20130627
  Serious: Yes (Life-Threatening, Hospitalization, Other)
  Sender: FDA-Public Use
  Company Number: PHHY2012DE095138

PATIENT
  Sex: Male

DRUGS (2)
  1. LEPONEX [Suspect]
     Indication: SCHIZOPHRENIA, PARANOID TYPE
     Dosage: 300 mg, UNK
     Route: 048
     Dates: start: 201207
  2. ABILIFY [Concomitant]
     Indication: SCHIZOPHRENIA, PARANOID TYPE
     Dosage: 25 mg, QD
     Route: 048
     Dates: start: 201206

REACTIONS (2)
  - Cerebral haemorrhage [Recovering/Resolving]
  - Salivary hypersecretion [Unknown]
